FAERS Safety Report 25497390 (Version 1)
Quarter: 2025Q3

REPORT INFORMATION
  Report Type: Spontaneous
  Country: EU (occurrence: EU)
  Receive Date: 20250701
  Receipt Date: 20250701
  Transmission Date: 20251020
  Serious: Yes (Other)
  Sender: CELLTRION
  Company Number: None

PATIENT

DRUGS (3)
  1. BEVACIZUMAB [Suspect]
     Active Substance: BEVACIZUMAB
     Indication: Colon cancer
     Route: 042
     Dates: start: 20241223, end: 20241223
  2. IRINOTECAN [Suspect]
     Active Substance: IRINOTECAN
     Indication: Colon cancer
     Route: 042
     Dates: start: 20241223, end: 20241223
  3. FLUOROURACIL [Suspect]
     Active Substance: FLUOROURACIL
     Indication: Colon cancer
     Route: 042
     Dates: start: 20241223, end: 20241225

REACTIONS (1)
  - Neuropathy peripheral [Not Recovered/Not Resolved]

NARRATIVE: CASE EVENT DATE: 20241223
